FAERS Safety Report 16784792 (Version 2)
Quarter: 2019Q4

REPORT INFORMATION
  Report Type: Other
  Country: BE (occurrence: BE)
  Receive Date: 20190909
  Receipt Date: 20191007
  Transmission Date: 20200122
  Serious: Yes (Other)
  Sender: FDA-Public Use
  Company Number: BE-APOTEX-2019AP021531

PATIENT
  Age: 44 Year
  Sex: Female
  Weight: 70 kg

DRUGS (4)
  1. TRAZODONE [Interacting]
     Active Substance: TRAZODONE HYDROCHLORIDE
     Indication: INSOMNIA
     Dosage: 0.5 DF, Q.H.S. (THE EVENING)
     Route: 048
     Dates: start: 20190620
  2. PAROXETINE. [Suspect]
     Active Substance: PAROXETINE
     Indication: POST-TRAUMATIC STRESS DISORDER
     Dosage: 1 DF, Q.AM
     Route: 048
     Dates: start: 20190620, end: 20190729
  3. ALPRAZOLAM. [Concomitant]
     Active Substance: ALPRAZOLAM
     Indication: ANXIETY
     Dosage: 1 DF, QD
     Route: 048
     Dates: start: 20190704
  4. MOMETASONE [Concomitant]
     Active Substance: MOMETASONE
     Indication: RHINITIS
     Dosage: 2 DF, QD, (2 PUFF PER NOSTRIL 1X PER DAY)
     Route: 045
     Dates: start: 20190624

REACTIONS (3)
  - Negative thoughts [Unknown]
  - Suicidal ideation [Unknown]
  - Drug interaction [Unknown]

NARRATIVE: CASE EVENT DATE: 2019
